FAERS Safety Report 5948752-3 (Version None)
Quarter: 2008Q4

REPORT INFORMATION
  Report Type: 
  Country: None (occurrence: None)
  Receive Date: 20081111
  Receipt Date: 20081105
  Transmission Date: 20090506
  Serious: Yes (Other)
  Sender: FDA-Public Use
  Company Number: GB-WYE-G02522708

PATIENT
  Sex: Male

DRUGS (1)
  1. EFFEXOR XR [Suspect]
     Dosage: UNKNOWN

REACTIONS (5)
  - EUPHORIC MOOD [None]
  - FEELING GUILTY [None]
  - MANIA [None]
  - MOOD SWINGS [None]
  - THEFT [None]
